FAERS Safety Report 11721703 (Version 2)
Quarter: 2015Q4

REPORT INFORMATION
  Report Type: Spontaneous
  Country: NL (occurrence: NL)
  Receive Date: 20151111
  Receipt Date: 20151120
  Transmission Date: 20160304
  Serious: Yes (Death)
  Sender: FDA-Public Use
  Company Number: US-ASTRAZENECA-2015SF08743

PATIENT
  Age: 82 Year
  Sex: Male

DRUGS (13)
  1. CARBASALATE CALCIUM [Concomitant]
     Active Substance: CARBASALATE
     Dosage: UNK, QD
     Route: 048
  2. PREDNISOLON [Concomitant]
     Active Substance: PREDNISOLONE
     Dosage: UNK, QD
     Route: 048
  3. AZITROMYCINE [Concomitant]
     Dosage: UNK
     Route: 048
  4. BECLOMETASONE [Concomitant]
     Active Substance: BECLOMETHASONE DIPROPIONATE
     Dosage: UNK, BID
     Route: 055
  5. CALCIUM CARBONATE. [Concomitant]
     Active Substance: CALCIUM CARBONATE
     Dosage: UNK, QD
     Route: 048
  6. TIOTROPIUM [Concomitant]
     Active Substance: TIOTROPIUM
     Dosage: UNK, QD
     Route: 055
  7. HYDROCHLOROTHIAZIDE. [Concomitant]
     Active Substance: HYDROCHLOROTHIAZIDE
     Dosage: UNK
     Route: 048
  8. RISEDRONIC ACID [Concomitant]
     Active Substance: RISEDRONIC ACID
     Route: 048
  9. BUDESONIDE. [Concomitant]
     Active Substance: BUDESONIDE
     Route: 055
  10. FOSINOPRIL [Concomitant]
     Active Substance: FOSINOPRIL
     Dosage: UNK, QD
     Route: 048
  11. FOSINOPRIL [Concomitant]
     Active Substance: FOSINOPRIL
     Route: 048
  12. DAXAS [Suspect]
     Active Substance: ROFLUMILAST
     Indication: CHRONIC OBSTRUCTIVE PULMONARY DISEASE
     Route: 048
     Dates: start: 20110106
  13. RABEPRAZOLE [Concomitant]
     Active Substance: RABEPRAZOLE
     Route: 048

REACTIONS (1)
  - Death [Fatal]

NARRATIVE: CASE EVENT DATE: 20151102
